FAERS Safety Report 6087835-7 (Version None)
Quarter: 2009Q1

REPORT INFORMATION
  Report Type: 
  Country: None (occurrence: None)
  Receive Date: 20090223
  Receipt Date: 20090213
  Transmission Date: 20090719
  Serious: Yes (Other)
  Sender: FDA-Public Use
  Company Number: FR-GENENTECH-277578

PATIENT
  Sex: Female

DRUGS (6)
  1. AVASTIN [Suspect]
     Indication: BREAST CANCER
     Dosage: 15 MG, UNK
     Route: 042
     Dates: start: 20071106, end: 20080313
  2. TAXOL [Suspect]
     Indication: BREAST CANCER
     Dosage: UNK
     Route: 042
     Dates: start: 20071106
  3. TAXOL [Suspect]
     Dosage: UNK
     Route: 042
     Dates: start: 20080618
  4. XELODA [Concomitant]
     Indication: BREAST CANCER
     Dosage: UNK
     Dates: start: 20061003
  5. HOLOXAN [Concomitant]
     Indication: BREAST CANCER
     Dosage: UNK
     Dates: start: 20070220
  6. ENDOXAN [Concomitant]
     Indication: BREAST CANCER
     Dosage: 150 MG, UNK
     Dates: start: 20070311

REACTIONS (2)
  - IMPAIRED HEALING [None]
  - SKIN NECROSIS [None]
